FAERS Safety Report 4986453-9 (Version None)
Quarter: 2006Q2

REPORT INFORMATION
  Report Type: 
  Country: None (occurrence: None)
  Receive Date: 20060424
  Receipt Date: 20060412
  Transmission Date: 20061013
  Serious: Yes (Hospitalization, Other)
  Sender: FDA-Public Use
  Company Number: 200511088BVD

PATIENT
  Age: 64 Year
  Sex: Female
  Weight: 92 kg

DRUGS (9)
  1. PACLITAXEL [Suspect]
     Indication: MALIGNANT MELANOMA
     Dosage: 443 MG, TOTAL DAILY, INTRAVENOUS
     Route: 042
     Dates: start: 20051019
  2. CARBOPLATIN [Suspect]
     Indication: MALIGNANT MELANOMA
     Dosage: 417 MG, TOTAL DAILY, INTRAVENOUS
     Route: 042
     Dates: start: 20051019
  3. SORAFENIB [Suspect]
     Indication: MALIGNANT MELANOMA
     Dosage: SEE IMAGE
     Route: 048
     Dates: start: 20051020, end: 20051026
  4. SORAFENIB [Suspect]
     Indication: MALIGNANT MELANOMA
     Dosage: SEE IMAGE
     Route: 048
     Dates: start: 20051102, end: 20051106
  5. ATACAND [Concomitant]
  6. METOPROLOL [Concomitant]
  7. ALLOPURINOL [Concomitant]
  8. CIPROBAY [Concomitant]
  9. HYDROXYUREA [Concomitant]

REACTIONS (14)
  - ANAEMIA [None]
  - CONCOMITANT DISEASE PROGRESSION [None]
  - FATIGUE [None]
  - GENERAL PHYSICAL HEALTH DETERIORATION [None]
  - LEUKOPENIA [None]
  - MALIGNANT NEOPLASM PROGRESSION [None]
  - MALIGNANT PERITONEAL NEOPLASM [None]
  - METASTASES TO BONE [None]
  - METASTASES TO LIVER [None]
  - METASTASES TO LUNG [None]
  - SKIN TOXICITY [None]
  - THROMBOCYTOPENIA [None]
  - THROMBOPHLEBITIS SUPERFICIAL [None]
  - THROMBOSIS [None]
